FAERS Safety Report 9522251 (Version 1)
Quarter: 2013Q3

REPORT INFORMATION
  Report Type: Spontaneous
  Country: US (occurrence: US)
  Receive Date: 20130913
  Receipt Date: 20130913
  Transmission Date: 20140515
  Serious: Yes (Other)
  Sender: FDA-Public Use
  Company Number: US-PFIZER INC-2013262295

PATIENT
  Age: 10 Year
  Sex: Male

DRUGS (2)
  1. DILANTIN [Suspect]
     Indication: CONVULSION
     Dosage: 400 MG, 3X/DAY
     Route: 042
     Dates: start: 20040222
  2. DILANTIN [Suspect]
     Indication: CONVULSION
     Dosage: 300 MG, 1X/DAY (100MG THREE CAPSULES)
     Route: 048
     Dates: start: 20040316, end: 20040326

REACTIONS (2)
  - Stevens-Johnson syndrome [Recovering/Resolving]
  - Toxic epidermal necrolysis [Recovering/Resolving]
